FAERS Safety Report 7471690-4 (Version None)
Quarter: 2011Q2

REPORT INFORMATION
  Report Type: 
  Country: None (occurrence: None)
  Receive Date: 20110511
  Receipt Date: 20110426
  Transmission Date: 20111010
  Serious: Yes (Other)
  Sender: FDA-Public Use
  Company Number: JP-JNJFOC-20101107503

PATIENT

DRUGS (3)
  1. RISPERDAL [Suspect]
     Route: 048
  2. RISPERDAL [Suspect]
     Indication: PRODUCT USED FOR UNKNOWN INDICATION
     Route: 048
  3. UNKNOWN MEDICATION [Concomitant]
     Route: 065

REACTIONS (4)
  - AKATHISIA [None]
  - MUSCULOSKELETAL STIFFNESS [None]
  - SUPRAVENTRICULAR EXTRASYSTOLES [None]
  - BLOOD PROLACTIN INCREASED [None]
